FAERS Safety Report 6610870-4 (Version None)
Quarter: 2010Q1

REPORT INFORMATION
  Report Type: 
  Country: None (occurrence: None)
  Receive Date: 20100302
  Receipt Date: 20100225
  Transmission Date: 20100710
  Serious: Yes (Death, Hospitalization, Disabling, Other)
  Sender: FDA-Public Use
  Company Number: US-MERCK-0908USA00566

PATIENT
  Age: 61 Year
  Sex: Male

DRUGS (4)
  1. FOSAMAX [Suspect]
     Indication: OSTEOPOROSIS
     Route: 048
     Dates: start: 19970715, end: 20011219
  2. FOSAMAX [Suspect]
     Route: 048
     Dates: start: 20011219, end: 20060523
  3. IMURAN [Suspect]
     Indication: KIDNEY TRANSPLANT REJECTION
     Route: 065
     Dates: start: 19730101
  4. PREDNISONE TAB [Suspect]
     Indication: KIDNEY TRANSPLANT REJECTION
     Route: 065

REACTIONS (31)
  - BONE DENSITY DECREASED [None]
  - DEATH [None]
  - DYSPHAGIA [None]
  - GINGIVAL DISORDER [None]
  - GINGIVITIS [None]
  - GRANULOMA [None]
  - HYPERKALAEMIA [None]
  - IMPAIRED HEALING [None]
  - JAW DISORDER [None]
  - JAW FRACTURE [None]
  - LEUKOCYTOSIS [None]
  - LIP AND/OR ORAL CAVITY CANCER [None]
  - MUSCULOSKELETAL DISORDER [None]
  - OEDEMA MOUTH [None]
  - ORAL DISORDER [None]
  - ORAL INFECTION [None]
  - ORAL PAIN [None]
  - OSTEOMYELITIS [None]
  - OSTEONECROSIS [None]
  - PERIODONTAL DISEASE [None]
  - PNEUMONIA [None]
  - POLLAKIURIA [None]
  - PROSTATOMEGALY [None]
  - RASH [None]
  - RENAL CYST [None]
  - SENSORY LOSS [None]
  - SKIN LESION [None]
  - SQUAMOUS CELL CARCINOMA [None]
  - TOOTH DISCOLOURATION [None]
  - TRISMUS [None]
  - WEIGHT DECREASED [None]
